FAERS Safety Report 12168016 (Version 1)
Quarter: 2016Q1

REPORT INFORMATION
  Report Type: Spontaneous
  Country: US (occurrence: None)
  Receive Date: 20160309
  Receipt Date: 20160309
  Transmission Date: 20160526
  Serious: No
  Sender: FDA-Public Use
  Company Number: None

PATIENT

DRUGS (1)
  1. INTRALIPID [Suspect]
     Active Substance: EGG PHOSPHOLIPIDS\GLYCERIN\SOYBEAN OIL
     Dates: start: 20160307, end: 20160307

REACTIONS (2)
  - Product colour issue [None]
  - Product compounding quality issue [None]

NARRATIVE: CASE EVENT DATE: 20160307
